FAERS Safety Report 6845139-6 (Version None)
Quarter: 2010Q3

REPORT INFORMATION
  Report Type: 
  Country: None (occurrence: None)
  Receive Date: 20100715
  Receipt Date: 20100703
  Transmission Date: 20110219
  Serious: Yes (Life-Threatening, Hospitalization)
  Sender: FDA-Public Use
  Company Number: PL-JNJFOC-20100404724

PATIENT
  Sex: Female
  Weight: 81.5 kg

DRUGS (14)
  1. GOLIMUMAB [Suspect]
     Route: 058
  2. GOLIMUMAB [Suspect]
     Indication: RHEUMATOID ARTHRITIS
     Route: 058
  3. PLACEBO [Suspect]
     Indication: RHEUMATOID ARTHRITIS
     Route: 048
  4. DIHYDROERGOCRISTINE [Concomitant]
     Route: 048
  5. RESERPINE [Concomitant]
     Route: 048
  6. PREDNISONE [Concomitant]
     Route: 048
  7. KETOPROFEN [Concomitant]
     Route: 048
  8. CLOPAMIDE [Concomitant]
     Route: 048
  9. OMEPRAZOLE [Concomitant]
     Route: 048
  10. FOLIC ACID [Concomitant]
     Route: 048
  11. METHOTREXATE [Concomitant]
     Route: 048
  12. LOSARTAN POSTASSIUM [Concomitant]
     Route: 048
  13. DETRALEX [Concomitant]
     Route: 048
  14. CLEXANE [Concomitant]
     Route: 058

REACTIONS (1)
  - BRONCHOPNEUMONIA [None]
